FAERS Safety Report 10637815 (Version 1)
Quarter: 2014Q4

REPORT INFORMATION
  Report Type: Spontaneous
  Country: US (occurrence: None)
  Receive Date: 20141204
  Receipt Date: 20141204
  Transmission Date: 20150529
  Serious: Yes (Hospitalization)
  Sender: FDA-Public Use
  Company Number: None

PATIENT
  Age: 64 Year
  Sex: Female

DRUGS (9)
  1. ATORVASTATIN [Concomitant]
     Active Substance: ATORVASTATIN
  2. MESALAMINE. [Concomitant]
     Active Substance: MESALAMINE
  3. AMBRISENTAN [Concomitant]
     Active Substance: AMBRISENTAN
  4. METOLAZONE. [Concomitant]
     Active Substance: METOLAZONE
  5. LISINOPRIL. [Concomitant]
     Active Substance: LISINOPRIL
  6. SPIRONOLACTONE. [Concomitant]
     Active Substance: SPIRONOLACTONE
  7. LETAIRIS [Suspect]
     Active Substance: AMBRISENTAN
     Indication: PULMONARY HYPERTENSION
     Route: 048
     Dates: start: 200906
  8. WARFARIN [Concomitant]
     Active Substance: WARFARIN
  9. PANTOPRAZOLE [Concomitant]
     Active Substance: PANTOPRAZOLE SODIUM

REACTIONS (8)
  - Acute kidney injury [None]
  - Malaise [None]
  - Faeces discoloured [None]
  - Tricuspid valve incompetence [None]
  - Nausea [None]
  - Cardiorenal syndrome [None]
  - Pulmonary oedema [None]
  - Asthenia [None]

NARRATIVE: CASE EVENT DATE: 20141118
